FAERS Safety Report 6709311-8 (Version None)
Quarter: 2010Q2

REPORT INFORMATION
  Report Type: 
  Country: None (occurrence: None)
  Receive Date: 20100504
  Receipt Date: 20100423
  Transmission Date: 20101027
  Serious: Yes (Other)
  Sender: FDA-Public Use
  Company Number: CA-JNJFOC-20091206971

PATIENT
  Sex: Female
  Weight: 51 kg

DRUGS (3)
  1. REMICADE [Suspect]
     Indication: CROHN'S DISEASE
     Dosage: 24TH INFUSION; EVERY 6-8 WEEKS
     Route: 042
  2. REMICADE [Suspect]
     Dosage: EVERY 6-8 WEEKS
     Route: 042
  3. CORTIFOAM [Concomitant]

REACTIONS (1)
  - SUPERFICIAL INJURY OF EYE [None]
